FAERS Safety Report 8238442-9 (Version None)
Quarter: 2012Q1

REPORT INFORMATION
  Report Type: 
  Country: None (occurrence: None)
  Receive Date: 20120309
  Receipt Date: 20100427
  Transmission Date: 20120608
  Serious: No
  Sender: FDA-Public Use
  Company Number: PHEH2010US01318

PATIENT
  Age: 33 Year
  Sex: Female

DRUGS (6)
  1. BACLOFEN [Concomitant]
  2. EXTAVIA [Suspect]
     Indication: MULTIPLE SCLEROSIS
     Dosage: 0.25 MG, QOD, SUBCUTANEOUS
     Route: 058
     Dates: start: 20091109
  3. THYROID TAB [Concomitant]
  4. LYRICA [Concomitant]
  5. LAMOTRIGINE [Concomitant]
  6. CONTRACEPTIVES NOS (NO INGREDEINTS/SUBSTANCES) [Concomitant]

REACTIONS (1)
  - PAIN IN EXTREMITY [None]
